FAERS Safety Report 5485253-3 (Version None)
Quarter: 2007Q4

REPORT INFORMATION
  Report Type: 
  Country: None (occurrence: None)
  Receive Date: 20071015
  Receipt Date: 20071010
  Transmission Date: 20080405
  Serious: Yes (Death, Life-Threatening, Hospitalization, Other)
  Sender: FDA-Public Use
  Company Number: PHHO2007US08456

PATIENT
  Age: 90 Year
  Sex: Female
  Weight: 56.7 kg

DRUGS (5)
  1. EXELON [Suspect]
     Indication: DEMENTIA ALZHEIMER'S TYPE
     Dosage: 3 MG, BID
     Route: 048
     Dates: start: 20070213, end: 20070513
  2. NAMENDA [Suspect]
     Indication: DEMENTIA ALZHEIMER'S TYPE
     Dosage: 10 MG, BID
     Route: 048
     Dates: start: 20070213, end: 20070513
  3. TOPROL-XL [Concomitant]
  4. WARFARIN SODIUM [Concomitant]
  5. LISINOPRIL [Concomitant]

REACTIONS (8)
  - ACUTE MYOCARDIAL INFARCTION [None]
  - BUNDLE BRANCH BLOCK LEFT [None]
  - CHEST DISCOMFORT [None]
  - CHEST PAIN [None]
  - CONCOMITANT DISEASE PROGRESSION [None]
  - DIZZINESS [None]
  - LOSS OF CONSCIOUSNESS [None]
  - SHOCK [None]
